FAERS Safety Report 13891800 (Version 5)
Quarter: 2017Q3

REPORT INFORMATION
  Report Type: Spontaneous
  Country: US (occurrence: US)
  Receive Date: 20170822
  Receipt Date: 20170922
  Transmission Date: 20171127
  Serious: Yes (Other)
  Sender: FDA-Public Use
  Company Number: US-TEVA-799033ACC

PATIENT
  Sex: Female

DRUGS (1)
  1. PARAGARD T 380A [Suspect]
     Active Substance: COPPER
     Indication: CONTRACEPTION
     Dosage: WITHIN 4 YEARS
     Route: 065

REACTIONS (8)
  - Muscle spasms [Unknown]
  - Maternal exposure during pregnancy [Unknown]
  - Abdominal pain [Unknown]
  - Device dislocation [Recovered/Resolved]
  - Abortion spontaneous [Recovered/Resolved]
  - Pregnancy on contraceptive [Recovered/Resolved]
  - Vaginal haemorrhage [Unknown]
  - Embedded device [Recovered/Resolved]

NARRATIVE: CASE EVENT DATE: 20170816
